FAERS Safety Report 9172899 (Version 1)
Quarter: 2013Q1

REPORT INFORMATION
  Report Type: Spontaneous
  Country: US (occurrence: US)
  Receive Date: 20130319
  Receipt Date: 20130319
  Transmission Date: 20140127
  Serious: No
  Sender: FDA-Public Use
  Company Number: US-009507513-1303USA006529

PATIENT
  Sex: Male

DRUGS (2)
  1. PEGINTRON [Suspect]
     Dosage: 120 MICROGRAM, QW
  2. PEGINTRON [Suspect]
     Dosage: 120 MICROGRAM, BID
     Dates: start: 20130308, end: 20130308

REACTIONS (2)
  - Accidental overdose [Unknown]
  - No adverse event [Unknown]
